FAERS Safety Report 8084606-7 (Version None)
Quarter: 2012Q1

REPORT INFORMATION
  Report Type: 
  Country: None (occurrence: None)
  Receive Date: 20120128
  Receipt Date: 20110330
  Transmission Date: 20120608
  Serious: No
  Sender: FDA-Public Use
  Company Number: US-ABBOTT-11P-163-0715271-00

PATIENT
  Age: 54 Year
  Sex: Female

DRUGS (10)
  1. VITAMIN D [Concomitant]
     Indication: VITAMIN SUPPLEMENTATION
     Dosage: SOFT GEL TABS
  2. METFFORMIN HYDROCHLORIDE [Concomitant]
     Indication: TYPE 2 DIABETES MELLITUS
  3. GLUCOSAMINE [Concomitant]
     Indication: OSTEOARTHRITIS
  4. HYDROCODONE BITARTRATE [Concomitant]
     Indication: BACK PAIN
     Dosage: 10/325MG 1/2 TAB EVERY 6 HOURS: USUALLY 1-3 TABS DURING WAKING HOURS
  5. GABAPENTIN [Concomitant]
     Indication: NECK PAIN
     Dosage: 3-TABS- IN A 24 HOUR PERIOD PRN
  6. HUMIRA [Suspect]
     Indication: CROHN'S DISEASE
     Dates: start: 20110301
  7. PENTASA [Concomitant]
     Indication: CROHN'S DISEASE
  8. PREMARIN [Concomitant]
     Indication: HORMONE REPLACEMENT THERAPY
  9. TYLENOL W/ CODEINE NO. 3 [Concomitant]
     Indication: PAIN
     Dosage: ON TAB Q4H PRN
  10. CARISOPRODOL [Concomitant]
     Indication: HYPOTONIA
     Dosage: ONE TAB AT BEDTIME

REACTIONS (4)
  - INJECTION SITE NODULE [None]
  - INJECTION SITE ERYTHEMA [None]
  - INJECTION SITE PRURITUS [None]
  - INJECTION SITE OEDEMA [None]
